FAERS Safety Report 7718944-1 (Version None)
Quarter: 2011Q3

REPORT INFORMATION
  Report Type: 
  Country: None (occurrence: None)
  Receive Date: 20110830
  Receipt Date: 20101115
  Transmission Date: 20111222
  Serious: Yes (Other)
  Sender: FDA-Public Use
  Company Number: US-GLAXOSMITHKLINE-A0893332A

PATIENT
  Sex: Male

DRUGS (5)
  1. AVANDAMET [Suspect]
     Indication: DIABETES MELLITUS
     Dosage: 1TAB TWICE PER DAY
     Route: 048
     Dates: start: 20030626, end: 20030101
  2. AVANDIA [Suspect]
     Indication: DIABETES MELLITUS
     Dosage: 8MG TWICE PER DAY
     Route: 048
     Dates: start: 20030101, end: 20090101
  3. INSULIN [Concomitant]
  4. LISINOPRIL [Concomitant]
  5. GLUCOPHAGE [Concomitant]

REACTIONS (5)
  - THALAMIC INFARCTION [None]
  - CARDIOVASCULAR DISORDER [None]
  - CARDIAC DISORDER [None]
  - LACUNAR INFARCTION [None]
  - CEREBROVASCULAR ACCIDENT [None]
